FAERS Safety Report 5468267-9 (Version None)
Quarter: 2007Q3

REPORT INFORMATION
  Report Type: 
  Country: None (occurrence: None)
  Receive Date: 20070921
  Receipt Date: 20070905
  Transmission Date: 20080115
  Serious: Yes (Hospitalization)
  Sender: FDA-Public Use
  Company Number: S07-UKI-05053-01

PATIENT
  Sex: Female

DRUGS (3)
  1. ESCITALOPRAM [Suspect]
     Dosage: 10 MG QD PO
     Route: 048
     Dates: start: 20061101, end: 20061201
  2. ESCITALOPRAM [Suspect]
     Dosage: 20 MG QD PO
     Route: 048
     Dates: start: 20061201
  3. UNSPECIFIED MEDICATIONS [Concomitant]

REACTIONS (2)
  - ATRIAL FIBRILLATION [None]
  - SUPRAVENTRICULAR TACHYCARDIA [None]
